FAERS Safety Report 16635819 (Version 1)
Quarter: 2019Q3

REPORT INFORMATION
  Report Type: Spontaneous
  Country: US (occurrence: US)
  Receive Date: 20190725
  Receipt Date: 20190725
  Transmission Date: 20191004
  Serious: No
  Sender: FDA-Public Use
  Company Number: None

PATIENT
  Age: 60 Year
  Sex: Female

DRUGS (1)
  1. TOBRAMYCIN INHALATION SOLUTION [Suspect]
     Active Substance: TOBRAMYCIN
     Indication: BRONCHIECTASIS
     Route: 055
     Dates: start: 20190719, end: 20190725

REACTIONS (9)
  - Drug hypersensitivity [None]
  - Back pain [None]
  - Treatment noncompliance [None]
  - Vertigo [None]
  - Incorrect dose administered [None]
  - Adverse drug reaction [None]
  - Dizziness [None]
  - Tinnitus [None]
  - Micturition urgency [None]

NARRATIVE: CASE EVENT DATE: 20190725
